FAERS Safety Report 9816764 (Version 1)
Quarter: 2014Q1

REPORT INFORMATION
  Report Type: Spontaneous
  Country: US (occurrence: US)
  Receive Date: 20140114
  Receipt Date: 20140114
  Transmission Date: 20141002
  Serious: No
  Sender: FDA-Public Use
  Company Number: US-TEVA-455886USA

PATIENT
  Age: 78 Year
  Sex: Male
  Weight: 95.34 kg

DRUGS (5)
  1. PROAIR HFA [Suspect]
     Indication: SINUSITIS
  2. PROAIR HFA [Suspect]
     Indication: BRONCHITIS
  3. MUCINEX DM [Concomitant]
     Indication: INCREASED UPPER AIRWAY SECRETION
  4. AMOX-CLAV [Concomitant]
     Indication: SINUSITIS
     Dosage: 1750 MILLIGRAM DAILY;
  5. AMOX-CLAV [Concomitant]
     Indication: BRONCHITIS

REACTIONS (3)
  - Eye pruritus [Not Recovered/Not Resolved]
  - Pruritus [Not Recovered/Not Resolved]
  - Eye swelling [Not Recovered/Not Resolved]
